FAERS Safety Report 6793362-1 (Version None)
Quarter: 2010Q2

REPORT INFORMATION
  Report Type: 
  Country: None (occurrence: None)
  Receive Date: 20100624
  Receipt Date: 20100125
  Transmission Date: 20101027
  Serious: No
  Sender: FDA-Public Use
  Company Number: US-MYLANLABS-2009S1022151

PATIENT
  Age: 33 Year
  Sex: Male

DRUGS (7)
  1. CLOZAPINE [Suspect]
     Indication: AGGRESSION
     Route: 048
     Dates: start: 20091220, end: 20091229
  2. CLOZAPINE [Suspect]
     Indication: MENTAL RETARDATION
     Route: 048
     Dates: start: 20091220, end: 20091229
  3. CLOZAPINE [Suspect]
     Indication: AUTISM
     Route: 048
     Dates: start: 20091220, end: 20091229
  4. KEPPRA [Concomitant]
     Dates: start: 20091020, end: 20091229
  5. TRILEPTAL [Concomitant]
     Dates: start: 20091020, end: 20091229
  6. RISPERDAL [Concomitant]
     Dates: start: 20091020, end: 20091229
  7. LORAZEPAM [Concomitant]
     Dates: start: 20091020, end: 20091229

REACTIONS (2)
  - GRANULOCYTOPENIA [None]
  - LEUKOPENIA [None]
